FAERS Safety Report 24640042 (Version 2)
Quarter: 2025Q2

REPORT INFORMATION
  Report Type: Spontaneous
  Country: US (occurrence: US)
  Receive Date: 20241120
  Receipt Date: 20250607
  Transmission Date: 20250716
  Serious: No
  Sender: COHERUS
  Company Number: US-Coherus Biosciences, Inc.-2024-COH-US000136

PATIENT

DRUGS (4)
  1. UDENYCA [Suspect]
     Active Substance: PEGFILGRASTIM-CBQV
     Indication: Prophylaxis
     Route: 058
     Dates: start: 20240201, end: 20240201
  2. UDENYCA [Suspect]
     Active Substance: PEGFILGRASTIM-CBQV
     Route: 058
     Dates: start: 20240220, end: 20240220
  3. DOCETAXEL [Concomitant]
     Active Substance: DOCETAXEL
  4. RAMUCIRUMAB [Concomitant]
     Active Substance: RAMUCIRUMAB

REACTIONS (2)
  - Accidental exposure to product [Recovered/Resolved]
  - Product quality issue [Recovered/Resolved]

NARRATIVE: CASE EVENT DATE: 20240220
